FAERS Safety Report 13370133 (Version 2)
Quarter: 2017Q3

REPORT INFORMATION
  Report Type: Spontaneous
  Country: GB (occurrence: GB)
  Receive Date: 20170324
  Receipt Date: 20170703
  Transmission Date: 20171127
  Serious: Yes (Death, Other)
  Sender: FDA-Public Use
  Company Number: GB-MYLANLABS-2017M1017765

PATIENT

DRUGS (20)
  1. TRAMADOL. [Suspect]
     Active Substance: TRAMADOL
     Dosage: 100 MG, UNK
     Route: 048
     Dates: start: 20150919, end: 20150919
  2. TRAMADOL. [Suspect]
     Active Substance: TRAMADOL
     Dosage: 100 MG, UNK
     Route: 048
     Dates: start: 20150925, end: 20150925
  3. SENNA [Concomitant]
     Active Substance: SENNA LEAF\SENNOSIDES\SENNOSIDES A AND B
     Indication: LAXATIVE SUPPORTIVE CARE
     Dosage: UP TO TWICE A DAY
  4. FERROUS FUMARATE [Concomitant]
     Active Substance: FERROUS FUMARATE
     Dosage: 1 DF, TID
  5. RANITIDINE HYDROCHLORIDE. [Concomitant]
     Active Substance: RANITIDINE HYDROCHLORIDE
     Indication: GASTRITIS PROPHYLAXIS
     Dosage: 150 MG, BID
  6. AMITRIPTYLINE HYDROCHLORIDE. [Concomitant]
     Active Substance: AMITRIPTYLINE HYDROCHLORIDE
     Indication: DEPRESSION
     Dosage: AT NIGHT.
     Dates: end: 20150801
  7. TRAMADOL. [Suspect]
     Active Substance: TRAMADOL
     Dosage: 150 MG, UNK
     Route: 048
     Dates: start: 20150918, end: 20150918
  8. TRAMADOL. [Suspect]
     Active Substance: TRAMADOL
     Dosage: 100 MG, UNK
     Route: 048
     Dates: start: 20150924, end: 20150924
  9. TRAMADOL. [Suspect]
     Active Substance: TRAMADOL
     Dosage: 50 MG, UNK
     Route: 048
     Dates: start: 20150917, end: 20150917
  10. TRAMADOL. [Suspect]
     Active Substance: TRAMADOL
     Dosage: 50 MG, UNK
     Route: 048
     Dates: start: 20150920, end: 20150922
  11. TRAMADOL. [Suspect]
     Active Substance: TRAMADOL
     Dosage: 300 MG, UNK
     Route: 048
     Dates: start: 20150923, end: 20150923
  12. ADCAL D3 [Concomitant]
     Active Substance: CALCIUM CARBONATE\CHOLECALCIFEROL
     Indication: OSTEOPOROSIS PROPHYLAXIS
     Dosage: 1 DF, BID
  13. AMITRIPTYLINE HYDROCHLORIDE. [Concomitant]
     Active Substance: AMITRIPTYLINE HYDROCHLORIDE
     Dosage: AT NIGHT.
     Dates: start: 20150801
  14. MIRTAZAPIN [Concomitant]
     Active Substance: MIRTAZAPINE
     Indication: DEPRESSION
     Dosage: AT NIGHT.WAS ON THIS THROUGHOUT PERIOD AND AT TIME OF BASELINE ECG
  15. PREDNISOLONE. [Concomitant]
     Active Substance: PREDNISOLONE
     Indication: STEROID THERAPY
     Dosage: IN THE MORNING.
  16. TRAMADOL. [Suspect]
     Active Substance: TRAMADOL
     Indication: ARTHRALGIA
     Dosage: 100 MG, UNK
     Route: 048
     Dates: start: 20150916, end: 20150916
  17. PARACETAMOL [Concomitant]
     Active Substance: ACETAMINOPHEN
     Indication: ANALGESIC THERAPY
     Dosage: 1 OR 2 UP TO FOUR TIMES A DAY
  18. PIROXICAM. [Concomitant]
     Active Substance: PIROXICAM
     Indication: ANALGESIC THERAPY
     Dosage: MORNINGS.
  19. RISEDRONATE [Concomitant]
     Active Substance: RISEDRONATE SODIUM
     Indication: OSTEOPOROSIS
     Dosage: 35 MG, QW
  20. ACIDEX [Concomitant]
     Active Substance: CALCIUM CARBONATE\SODIUM ALGINATE\SODIUM BICARBONATE
     Dosage: 10 MG, QD

REACTIONS (1)
  - Ventricular arrhythmia [Fatal]

NARRATIVE: CASE EVENT DATE: 20150925
